FAERS Safety Report 5906989-3 (Version None)
Quarter: 2008Q4

REPORT INFORMATION
  Report Type: 
  Country: None (occurrence: None)
  Receive Date: 20081002
  Receipt Date: 20081002
  Transmission Date: 20090506
  Serious: Yes (Life-Threatening)
  Sender: FDA-Public Use
  Company Number: None

PATIENT
  Age: 58 Year
  Sex: Male
  Weight: 127.0072 kg

DRUGS (1)
  1. GLIMEPIRIDE [Suspect]
     Indication: TYPE 2 DIABETES MELLITUS
     Dates: start: 20080805, end: 20080909

REACTIONS (2)
  - DYSPNOEA [None]
  - HEART RATE INCREASED [None]
